FAERS Safety Report 13792872 (Version 2)
Quarter: 2018Q2

REPORT INFORMATION
  Report Type: Spontaneous
  Country: FR (occurrence: FR)
  Receive Date: 20170726
  Receipt Date: 20180516
  Transmission Date: 20180711
  Serious: Yes (Hospitalization)
  Sender: FDA-Public Use
  Company Number: FR-PFIZER INC-2017318730

PATIENT
  Age: 70 Year
  Sex: Female

DRUGS (6)
  1. CLAMOXYL /00249601/ [Concomitant]
     Active Substance: AMOXICILLIN
     Indication: DENTAL IMPLANTATION
     Dosage: 4 DF, DAILY
     Route: 048
     Dates: start: 20151119, end: 20151122
  2. DOLIPRANE [Concomitant]
     Active Substance: ACETAMINOPHEN
     Dosage: 500 MG EVERY 6 HOURS
     Route: 048
     Dates: start: 20151122
  3. ADVIL [Suspect]
     Active Substance: IBUPROFEN
     Indication: DENTAL IMPLANTATION
     Dosage: ONE TABLET EVERY 4 HOURS
     Route: 048
     Dates: start: 20151122, end: 20151122
  4. CORTANCYL [Suspect]
     Active Substance: PREDNISONE
     Indication: DENTAL IMPLANTATION
     Dosage: 3 TABLETS DAILY
     Route: 048
     Dates: start: 20151119, end: 20151121
  5. CALTRATE [Concomitant]
     Active Substance: CALCIUM CARBONATE
     Indication: OSTEOPOROSIS
     Dosage: 1 DF, 2X/DAY
     Route: 048
  6. DOLIPRANE [Concomitant]
     Active Substance: ACETAMINOPHEN
     Indication: DENTAL IMPLANTATION
     Dosage: ONE TABLET EVERY 6 HOURS
     Route: 048
     Dates: start: 20151119, end: 20151122

REACTIONS (4)
  - Pneumoperitoneum [Recovered/Resolved]
  - Septic shock [Recovered/Resolved]
  - Abdominal abscess [Recovered/Resolved]
  - Intestinal perforation [Recovered/Resolved]

NARRATIVE: CASE EVENT DATE: 20151206
